FAERS Safety Report 25948964 (Version 1)
Quarter: 2025Q4

REPORT INFORMATION
  Report Type: Spontaneous
  Country: IN (occurrence: IN)
  Receive Date: 20251022
  Receipt Date: 20251022
  Transmission Date: 20260117
  Serious: Yes (Hospitalization)
  Sender: PFIZER
  Company Number: IN-PFIZER INC-202500205050

PATIENT
  Age: 55 Year
  Sex: Female

DRUGS (1)
  1. VORICONAZOLE [Suspect]
     Active Substance: VORICONAZOLE
     Indication: Fungal test positive
     Dosage: UNK
     Dates: start: 2024

REACTIONS (2)
  - Sinusitis fungal [Unknown]
  - Mucormycosis [Unknown]

NARRATIVE: CASE EVENT DATE: 20240101
